FAERS Safety Report 9951033 (Version 2)
Quarter: 2014Q1

REPORT INFORMATION
  Report Type: Report from Study
  Country: US (occurrence: US)
  Receive Date: 20140304
  Receipt Date: 20140304
  Transmission Date: 20141002
  Serious: No
  Sender: FDA-Public Use
  Company Number: US-ABBVIE-12P-163-0961761-00

PATIENT
  Age: 47 Year
  Sex: Female

DRUGS (19)
  1. HUMIRA [Suspect]
     Indication: CROHN^S DISEASE
     Dosage: LOADING DOSE
     Route: 058
     Dates: start: 20120715, end: 20120715
  2. HUMIRA [Suspect]
     Indication: ANKYLOSING SPONDYLITIS
     Route: 058
  3. CELEBREX [Concomitant]
     Indication: FIBROMYALGIA
  4. CELEBREX [Concomitant]
     Indication: ANKYLOSING SPONDYLITIS
  5. TOPROL [Concomitant]
     Indication: MITRAL VALVE PROLAPSE
  6. VITAMIN B [Concomitant]
     Indication: PRODUCT USED FOR UNKNOWN INDICATION
     Route: 050
  7. CLARITIN [Concomitant]
     Indication: HYPERSENSITIVITY
  8. PERCOCET [Concomitant]
     Indication: PAIN
  9. DILAUDID [Concomitant]
     Indication: PAIN
  10. TRAMADOL [Concomitant]
     Indication: PRODUCT USED FOR UNKNOWN INDICATION
     Dosage: EVERY SIX HOURS
  11. TRAMADOL [Concomitant]
     Dosage: EVERY NINE TO TEN HOURS
  12. SAVELLA [Concomitant]
     Indication: PRODUCT USED FOR UNKNOWN INDICATION
     Dosage: 12.5 MG, 2 PILLS IN MORNING AND AT BEDTIME
  13. GABAPENTIN [Concomitant]
     Indication: PRODUCT USED FOR UNKNOWN INDICATION
     Dosage: 300 MG, 2 PILLS, IN THE MORNING, NOON, AND BEDTIME
  14. XANAX [Concomitant]
     Indication: PRODUCT USED FOR UNKNOWN INDICATION
  15. XANAX [Concomitant]
  16. PREMPRO [Concomitant]
     Indication: MENOPAUSE
  17. PHENERGAN [Concomitant]
     Indication: NAUSEA
  18. FLEXERIL [Concomitant]
     Indication: MUSCLE RELAXANT THERAPY
  19. NEXIUM [Concomitant]
     Indication: GASTROOESOPHAGEAL REFLUX DISEASE

REACTIONS (31)
  - Stress [Unknown]
  - Injection site pain [Not Recovered/Not Resolved]
  - Diarrhoea [Unknown]
  - Malaise [Not Recovered/Not Resolved]
  - Gastric disorder [Not Recovered/Not Resolved]
  - Back pain [Not Recovered/Not Resolved]
  - Chest discomfort [Not Recovered/Not Resolved]
  - Pain in extremity [Not Recovered/Not Resolved]
  - Fatigue [Not Recovered/Not Resolved]
  - Respiration abnormal [Not Recovered/Not Resolved]
  - Fatigue [Not Recovered/Not Resolved]
  - Fatigue [Not Recovered/Not Resolved]
  - Nausea [Not Recovered/Not Resolved]
  - Chills [Not Recovered/Not Resolved]
  - Pain [Not Recovered/Not Resolved]
  - Headache [Not Recovered/Not Resolved]
  - Nasal congestion [Not Recovered/Not Resolved]
  - Aphonia [Not Recovered/Not Resolved]
  - Immune system disorder [Not Recovered/Not Resolved]
  - Malaise [Not Recovered/Not Resolved]
  - Feeling abnormal [Not Recovered/Not Resolved]
  - Diarrhoea [Unknown]
  - Listless [Unknown]
  - Clostridium difficile infection [Unknown]
  - Abdominal pain upper [Unknown]
  - Drug dose omission [Unknown]
  - Injection site haemorrhage [Unknown]
  - Injection site pain [Recovered/Resolved]
  - Vitamin D decreased [Unknown]
  - Upper respiratory tract infection [Unknown]
  - Blood thyroid stimulating hormone increased [Unknown]
